FAERS Safety Report 7009892-3 (Version None)
Quarter: 2010Q3

REPORT INFORMATION
  Report Type: 
  Country: None (occurrence: None)
  Receive Date: 20100923
  Receipt Date: 20100917
  Transmission Date: 20110219
  Serious: Yes (Death, Disabling, Other)
  Sender: FDA-Public Use
  Company Number: US-CELGENEUS-163-20785-10071149

PATIENT
  Sex: Female

DRUGS (24)
  1. THALOMID [Suspect]
     Indication: MULTIPLE MYELOMA
     Dosage: 400MG DAILY X 4 DOSES THEN 100MG DAILY
     Route: 048
     Dates: start: 20100618, end: 20100627
  2. DEXAMETHASONE [Suspect]
     Indication: SPINAL CORD COMPRESSION
     Route: 048
     Dates: start: 20100607
  3. DEXAMETHASONE [Suspect]
     Indication: MULTIPLE MYELOMA
     Route: 048
     Dates: start: 20100618, end: 20100625
  4. BORTEZOMIB [Suspect]
     Indication: MULTIPLE MYELOMA
     Route: 051
     Dates: start: 20100618, end: 20100625
  5. CISPLATIN [Suspect]
     Indication: MULTIPLE MYELOMA
     Route: 051
     Dates: start: 20100618, end: 20100621
  6. ADRIAMYCIN PFS [Suspect]
     Indication: MULTIPLE MYELOMA
     Route: 065
  7. CYCLOPHOSPHAMIDE [Suspect]
     Indication: MULTIPLE MYELOMA
     Route: 051
     Dates: start: 20100618, end: 20100621
  8. ETOPOSIDE [Suspect]
     Indication: MULTIPLE MYELOMA
     Route: 065
  9. ACYCLOVIR [Concomitant]
     Indication: HERPES SIMPLEX
     Route: 048
     Dates: start: 20100611
  10. ARIPIPRAZOLE [Concomitant]
     Indication: BIPOLAR DISORDER
     Route: 048
  11. BACLOFEN [Concomitant]
     Route: 048
     Dates: start: 20100616
  12. BUPROPION HCL [Concomitant]
     Indication: BIPOLAR DISORDER
     Route: 065
  13. CALCIUM WITH VITAMIN D [Concomitant]
     Route: 065
     Dates: start: 20100616
  14. NEUPOGEN [Concomitant]
     Indication: NEUTROPENIA
     Route: 058
     Dates: start: 20100623
  15. FLUCONAZOLE [Concomitant]
     Route: 048
     Dates: start: 20100625
  16. MORPHINE SULFATE [Concomitant]
     Indication: PAIN
     Route: 048
     Dates: start: 20100621
  17. MORPHINE SULFATE [Concomitant]
     Indication: PAIN
     Dosage: 15-30MG
     Route: 048
     Dates: start: 20100617
  18. BACTRIM DS [Concomitant]
     Indication: PNEUMONIA
     Route: 065
     Dates: start: 20100614
  19. VENLAFAXINA [Concomitant]
     Indication: BIPOLAR DISORDER
     Route: 048
  20. ACETAMINOPHEN [Concomitant]
     Indication: PAIN
     Dosage: 325-650 MG
     Route: 048
     Dates: start: 20100607, end: 20100625
  21. DOCUSATE SODIUM [Concomitant]
     Indication: CONSTIPATION
     Route: 048
     Dates: start: 20100607
  22. SODIUM CHLORIDE [Concomitant]
     Indication: PRODUCT USED FOR UNKNOWN INDICATION
     Route: 048
     Dates: start: 20100618, end: 20100625
  23. NEUPOGEN [Concomitant]
     Indication: PRODUCT USED FOR UNKNOWN INDICATION
     Route: 050
     Dates: start: 20100623, end: 20100625
  24. ONDANSETRON [Concomitant]
     Indication: PRODUCT USED FOR UNKNOWN INDICATION
     Route: 048
     Dates: start: 20100618, end: 20100621

REACTIONS (3)
  - HUMERUS FRACTURE [None]
  - PLATELET COUNT DECREASED [None]
  - PULMONARY HAEMORRHAGE [None]
